FAERS Safety Report 6269876-X (Version None)
Quarter: 2009Q3

REPORT INFORMATION
  Report Type: 
  Country: None (occurrence: None)
  Receive Date: 20090716
  Receipt Date: 20090707
  Transmission Date: 20100115
  Serious: Yes (Other)
  Sender: FDA-Public Use
  Company Number: PHHY2009JP27618

PATIENT
  Age: 55 Year
  Sex: Male

DRUGS (2)
  1. TEGRETOL [Suspect]
     Indication: SCHIZOPHRENIA
     Dosage: 400 MG/DAILY
     Route: 048
  2. PURSENNID [Suspect]
     Dosage: 12 MG DAILY
     Route: 048

REACTIONS (1)
  - HYPOGLYCAEMIA [None]
